FAERS Safety Report 11794947 (Version 3)
Quarter: 2015Q4

REPORT INFORMATION
  Report Type: Spontaneous
  Country: US (occurrence: None)
  Receive Date: 20151202
  Receipt Date: 20151218
  Transmission Date: 20160305
  Serious: Yes (Life-Threatening, Hospitalization, Other)
  Sender: FDA-Public Use
  Company Number: US-MDT-ADR-2015-02269

PATIENT
  Age: 78 Year
  Sex: Female

DRUGS (2)
  1. COMPOUNDED BACLOFEN INTRATHECAL4000 UG/ML [Suspect]
     Active Substance: BACLOFEN
     Indication: MUSCLE SPASTICITY
     Dosage: 1340.3 UG/DAY
  2. CLONIDINE INTRATHECAL 450 UG/ML [Suspect]
     Active Substance: CLONIDINE
     Indication: MUSCLE SPASTICITY
     Dosage: 150.78 UG/DAY

REACTIONS (20)
  - Unevaluable event [None]
  - Sepsis [None]
  - Vitamin B12 deficiency [None]
  - Seizure [None]
  - Mental status changes [None]
  - Inappropriate schedule of drug administration [None]
  - Unresponsive to stimuli [None]
  - Multiple sclerosis [None]
  - Septic shock [None]
  - Diverticulum [None]
  - Urinary tract infection [None]
  - Hypokalaemia [None]
  - Hypoxia [None]
  - Atelectasis [None]
  - Sleep apnoea syndrome [None]
  - Acute respiratory failure [None]
  - Confusional state [None]
  - Encephalopathy [None]
  - Malaise [None]
  - Overdose [None]
